FAERS Safety Report 6445655-5 (Version None)
Quarter: 2009Q4

REPORT INFORMATION
  Report Type: 
  Country: None (occurrence: None)
  Receive Date: 20091118
  Receipt Date: 20091118
  Transmission Date: 20100525
  Serious: No
  Sender: FDA-Public Use
  Company Number: None

PATIENT
  Age: 63 Year
  Sex: Male
  Weight: 72 kg

DRUGS (1)
  1. SODIUM CHLORIDE [Suspect]
     Indication: DRY EYE
     Dosage: SMALL AMOUNT DAILY OPHTHALMIC
     Route: 047
     Dates: start: 20091112, end: 20091112

REACTIONS (2)
  - FOREIGN BODY SENSATION IN EYES [None]
  - PRODUCT SUBSTITUTION ISSUE [None]
